FAERS Safety Report 6699728-2 (Version None)
Quarter: 2010Q2

REPORT INFORMATION
  Report Type: 
  Country: None (occurrence: None)
  Receive Date: 20100428
  Receipt Date: 20100421
  Transmission Date: 20101027
  Serious: No
  Sender: FDA-Public Use
  Company Number: 2009BI035292

PATIENT
  Age: 56 Year
  Sex: Male

DRUGS (1)
  1. TYSABRI [Suspect]
     Indication: MULTIPLE SCLEROSIS
     Route: 042
     Dates: start: 20081211

REACTIONS (5)
  - APATHY [None]
  - ASTHENIA [None]
  - DECREASED APPETITE [None]
  - MALAISE [None]
  - MULTIPLE SCLEROSIS RELAPSE [None]
